FAERS Safety Report 16530414 (Version 1)
Quarter: 2019Q3

REPORT INFORMATION
  Report Type: Spontaneous
  Country: JP (occurrence: JP)
  Receive Date: 20190704
  Receipt Date: 20190704
  Transmission Date: 20191004
  Serious: Yes (Other)
  Sender: FDA-Public Use
  Company Number: JP-LUPIN PHARMACEUTICALS INC.-2019-04080

PATIENT
  Age: 51 Year
  Sex: Male

DRUGS (1)
  1. CELECOXIB. [Suspect]
     Active Substance: CELECOXIB
     Indication: GOUT
     Dosage: 200 MILLIGRAM, QD
     Route: 065

REACTIONS (2)
  - Acute oesophageal mucosal lesion [Recovered/Resolved]
  - Oesophagitis chemical [Recovered/Resolved]
